APPROVED DRUG PRODUCT: CHLOROPTIC
Active Ingredient: CHLORAMPHENICOL
Strength: 0.5%
Dosage Form/Route: SOLUTION/DROPS;OPHTHALMIC
Application: N050091 | Product #001
Applicant: ALLERGAN PHARMACEUTICAL
Approved: Approved Prior to Jan 1, 1982 | RLD: No | RS: No | Type: DISCN